FAERS Safety Report 4587291-1 (Version None)
Quarter: 2005Q1

REPORT INFORMATION
  Report Type: 
  Country: None (occurrence: None)
  Receive Date: 20050218
  Receipt Date: 20050210
  Transmission Date: 20050727
  Serious: Yes (Hospitalization)
  Sender: FDA-Public Use
  Company Number: GB-BRISTOL-MYERS SQUIBB COMPANY-12856381

PATIENT
  Sex: Male

DRUGS (8)
  1. ETOPOSIDE [Suspect]
     Indication: MULTIPLE MYELOMA
  2. CISPLATIN [Suspect]
     Indication: MULTIPLE MYELOMA
     Route: 042
  3. METHYLPREDNISOLONE [Suspect]
     Indication: MULTIPLE MYELOMA
  4. CYTARABINE [Suspect]
     Indication: MULTIPLE MYELOMA
  5. NEUPOGEN [Concomitant]
  6. GRANISETRON [Concomitant]
  7. RANITIDINE [Concomitant]
  8. PREDNISOLONE [Concomitant]
     Route: 047

REACTIONS (1)
  - LARGE INTESTINE PERFORATION [None]
